FAERS Safety Report 12436972 (Version 1)
Quarter: 2016Q2

REPORT INFORMATION
  Report Type: Report from Study
  Country: CA (occurrence: CA)
  Receive Date: 20160606
  Receipt Date: 20160606
  Transmission Date: 20160815
  Serious: Yes (Death, Hospitalization)
  Sender: FDA-Public Use
  Company Number: PHHY2016CA035876

PATIENT
  Age: 55 Year
  Sex: Female

DRUGS (6)
  1. SANDOSTATIN [Suspect]
     Active Substance: OCTREOTIDE ACETATE
     Indication: CARCINOID TUMOUR
  2. SANDOSTATIN LAR DEPOT [Suspect]
     Active Substance: OCTREOTIDE ACETATE
     Indication: SMALL INTESTINAL OBSTRUCTION
  3. SANDOSTATIN LAR DEPOT [Suspect]
     Active Substance: OCTREOTIDE ACETATE
     Indication: CARCINOID TUMOUR
  4. SANDOSTATIN [Suspect]
     Active Substance: OCTREOTIDE ACETATE
     Indication: SMALL INTESTINAL OBSTRUCTION
  5. SANDOSTATIN [Suspect]
     Active Substance: OCTREOTIDE ACETATE
     Indication: COLORECTAL CANCER METASTATIC
     Dosage: (UNKNOWN DOSE MCG, TID THEN BID THEN ONCE A DAY)
     Route: 058
     Dates: start: 201512, end: 201602
  6. SANDOSTATIN LAR DEPOT [Suspect]
     Active Substance: OCTREOTIDE ACETATE
     Indication: COLORECTAL CANCER METASTATIC
     Dosage: 20 MG, QMO (EVERY 4 WEEKS)
     Route: 030
     Dates: start: 20160315, end: 20160510

REACTIONS (4)
  - Death [Fatal]
  - Product use issue [Unknown]
  - Abdominal pain [Unknown]
  - Intestinal obstruction [Unknown]

NARRATIVE: CASE EVENT DATE: 20160306
